FAERS Safety Report 16747410 (Version 6)
Quarter: 2020Q2

REPORT INFORMATION
  Report Type: Report from Study
  Country: US (occurrence: US)
  Receive Date: 20190827
  Receipt Date: 20200604
  Transmission Date: 20200713
  Serious: Yes (Hospitalization, Disabling)
  Sender: FDA-Public Use
  Company Number: US-ACTELION-A-NJ2019-194714

PATIENT
  Age: 28 Year
  Sex: Female
  Weight: 51.7 kg

DRUGS (18)
  1. FLONASE [Concomitant]
     Active Substance: FLUTICASONE PROPIONATE
     Dosage: 2 SPRAY, PRN
     Dates: start: 20170714
  2. ACETYLLEUCINE [Concomitant]
     Active Substance: ACETYLLEUCINE
     Dosage: 1500 MG, BID
  3. ZAVESCA [Suspect]
     Active Substance: MIGLUSTAT
     Indication: FABRY^S DISEASE
  4. GABAPENTIN. [Concomitant]
     Active Substance: GABAPENTIN
     Dosage: 500 MG, TID
     Route: 048
     Dates: start: 20180308
  5. 2-HYDROXYPROPYL-BETA-CYCLODEXTRIN [Concomitant]
     Dosage: 600 Q2WEEK
     Route: 042
  6. SUDAFED [Concomitant]
     Active Substance: PSEUDOEPHEDRINE HYDROCHLORIDE
     Dosage: UNK, PRN
     Route: 048
     Dates: start: 20170714
  7. 2-HYDROXYPROPYL-BETA-CYCLODEXTRIN [Concomitant]
     Dosage: 800 MG, QOW
     Dates: start: 20170714
  8. MIRTAZEPINE TEVA [Concomitant]
     Active Substance: MIRTAZAPINE
     Dosage: 7.5 MG
  9. PREGABALIN. [Concomitant]
     Active Substance: PREGABALIN
     Dosage: 150 MG, BID
  10. ZAVESCA [Suspect]
     Active Substance: MIGLUSTAT
     Indication: NIEMANN-PICK DISEASE
     Dosage: 200 MG, TID
     Route: 048
     Dates: start: 20170717
  11. SINGULAIR [Concomitant]
     Active Substance: MONTELUKAST SODIUM
     Dosage: 10 MG, QD
     Route: 048
     Dates: start: 20170714
  12. GABAPENTIN. [Concomitant]
     Active Substance: GABAPENTIN
     Dosage: 1000 MG, TID
  13. AFRIN [Concomitant]
     Active Substance: OXYMETAZOLINE
     Dosage: 1 SPRAY, PRN
     Dates: start: 20170714
  14. VITAMIN D3 [Concomitant]
     Active Substance: CHOLECALCIFEROL
     Dosage: 1000 MG, QD
     Dates: start: 20170714
  15. ATIVAN [Concomitant]
     Active Substance: LORAZEPAM
     Dosage: 1.5 MG, QPM
     Route: 048
     Dates: start: 20180308
  16. ACETAMINOPHEN. [Concomitant]
     Active Substance: ACETAMINOPHEN
     Dosage: 100 MG, TID
     Route: 048
     Dates: start: 20180308
  17. IBUPROFEN. [Concomitant]
     Active Substance: IBUPROFEN
     Dosage: 800 MG, TID
     Route: 048
     Dates: start: 20180308
  18. 2-HYDROXYPROPYL-BETA-CYCLODEXTRIN [Concomitant]
     Dosage: 120000 MG, Q2WEEK

REACTIONS (10)
  - Gastrointestinal tube insertion [Unknown]
  - Pneumonia aspiration [Recovered/Resolved]
  - Weight decreased [Unknown]
  - Tachypnoea [Recovered/Resolved]
  - Hypophagia [Unknown]
  - Pyrexia [Recovered/Resolved]
  - Cough [Recovered/Resolved]
  - Hypoxia [Recovered/Resolved]
  - Medical procedure [Unknown]
  - Product dose omission [Unknown]

NARRATIVE: CASE EVENT DATE: 20191108
